FAERS Safety Report 20417698 (Version 4)
Quarter: 2023Q2

REPORT INFORMATION
  Report Type: Spontaneous
  Country: BR (occurrence: None)
  Receive Date: 20220202
  Receipt Date: 20230517
  Transmission Date: 20230722
  Serious: Yes (Other)
  Sender: FDA-Public Use
  Company Number: 2022A049716

PATIENT
  Age: 23017 Day
  Sex: Female
  Weight: 69 kg

DRUGS (6)
  1. FASENRA [Suspect]
     Active Substance: BENRALIZUMAB
     Indication: Asthma
     Route: 058
     Dates: start: 20220112
  2. SYMBICORT [Suspect]
     Active Substance: BUDESONIDE\FORMOTEROL FUMARATE DIHYDRATE
     Dosage: 160/4.5MCG, TWO PUFFS FROM 3 TO 4 TIMES, DAILY
     Route: 055
  3. ESOMEPRAZOLE [Suspect]
     Active Substance: ESOMEPRAZOLE
     Route: 048
  4. ROSUVASTATIN [Suspect]
     Active Substance: ROSUVASTATIN
     Route: 048
  5. SPIRIVA RESPIMAT [Concomitant]
     Active Substance: TIOTROPIUM BROMIDE
     Route: 065
  6. DOMPERIDONE [Concomitant]
     Active Substance: DOMPERIDONE
     Route: 065

REACTIONS (8)
  - Blood pressure decreased [Recovered/Resolved]
  - Blood pressure increased [Unknown]
  - Pulmonary hypertension [Unknown]
  - Malaise [Recovered/Resolved]
  - Syncope [Unknown]
  - Pyrexia [Recovered/Resolved]
  - Muscle spasms [Unknown]
  - Medication error [Unknown]

NARRATIVE: CASE EVENT DATE: 20220112
